FAERS Safety Report 21294009 (Version 1)
Quarter: 2022Q3

REPORT INFORMATION
  Report Type: Spontaneous
  Country: GB (occurrence: GB)
  Receive Date: 20220905
  Receipt Date: 20220905
  Transmission Date: 20221027
  Serious: Yes (Other)
  Sender: FDA-Public Use
  Company Number: GB-MHRA-MED-202208311505571710-TZPBM

PATIENT

DRUGS (1)
  1. LAMICTAL [Suspect]
     Active Substance: LAMOTRIGINE
     Indication: Seizure
     Dosage: 12.5 MG, QD (12.5MG  ONCE A DAY AT NIGHT)
     Route: 065
     Dates: start: 20200218

REACTIONS (5)
  - Restlessness [Not Recovered/Not Resolved]
  - Papule [Recovered/Resolved]
  - Palpitations [Not Recovered/Not Resolved]
  - Haemangioma of skin [Not Recovered/Not Resolved]
  - Panic attack [Not Recovered/Not Resolved]
